FAERS Safety Report 9308599 (Version 2)
Quarter: 2013Q3

REPORT INFORMATION
  Report Type: Spontaneous
  Country: US (occurrence: US)
  Receive Date: 20130524
  Receipt Date: 20130705
  Transmission Date: 20140515
  Serious: No
  Sender: FDA-Public Use
  Company Number: US-B.I. PHARMACEUTICALS,INC./RIDGEFIELD-2013-BI-14492BP

PATIENT
  Age: 70 Year
  Sex: Female
  Weight: 84 kg

DRUGS (11)
  1. SPIRIVA [Suspect]
     Indication: CHRONIC OBSTRUCTIVE PULMONARY DISEASE
     Dosage: 18 MCG
     Route: 055
     Dates: start: 20130404, end: 20130424
  2. SPIRIVA [Suspect]
     Indication: ASTHMA
     Dates: start: 2005
  3. PROZAC [Concomitant]
     Indication: DEPRESSION
     Dosage: 20 MG
     Route: 048
  4. SIMVASTATIN [Concomitant]
     Indication: BLOOD CHOLESTEROL INCREASED
     Dosage: 20 MG
     Route: 048
  5. HYDROCODONE/ACETAMINOPHEN [Concomitant]
     Indication: BACK PAIN
     Dosage: STRENGTH: 5-500 MG; DAILY DOSE: 10-1000 MG
     Route: 048
  6. ALLEGRA [Concomitant]
     Indication: SEASONAL ALLERGY
     Dosage: 180 MG
     Route: 048
  7. MELOXICAM [Concomitant]
     Indication: BACK PAIN
     Dosage: 7.5 MG
     Route: 048
  8. FISH OIL [Concomitant]
     Dosage: 1000 U
     Route: 048
  9. VITAMIN C [Concomitant]
     Dosage: 500 MG
     Route: 048
  10. VITAMIN E [Concomitant]
     Dosage: 400 U
     Route: 048
  11. LISINOPRIL/ HCT [Concomitant]
     Indication: HYPERTENSION
     Dosage: STRENGTH: 20/25 MG; DAILY DOSE: 20/25 MG
     Route: 048

REACTIONS (3)
  - Nervousness [Not Recovered/Not Resolved]
  - Constipation [Recovered/Resolved]
  - Rash papular [Recovered/Resolved]
